FAERS Safety Report 14700797 (Version 2)
Quarter: 2018Q2

REPORT INFORMATION
  Report Type: Spontaneous
  Country: JP (occurrence: JP)
  Receive Date: 20180330
  Receipt Date: 20180509
  Transmission Date: 20180711
  Serious: Yes (Hospitalization)
  Sender: FDA-Public Use
  Company Number: JP-SA-2018SA090424

PATIENT
  Sex: Male

DRUGS (1)
  1. LEVOCETIRIZINE [Suspect]
     Active Substance: LEVOCETIRIZINE
     Indication: PRODUCT USED FOR UNKNOWN INDICATION
     Route: 048
     Dates: start: 20180316

REACTIONS (4)
  - Off label use [Unknown]
  - Somnolence [Unknown]
  - Overdose [Unknown]
  - Epistaxis [Unknown]

NARRATIVE: CASE EVENT DATE: 20180316
